FAERS Safety Report 22004161 (Version 2)
Quarter: 2023Q1

REPORT INFORMATION
  Report Type: Spontaneous
  Country: US (occurrence: US)
  Receive Date: 20230217
  Receipt Date: 20230221
  Transmission Date: 20230417
  Serious: No
  Sender: FDA-Public Use
  Company Number: US-SA-SAC20230216000529

PATIENT
  Sex: Male
  Weight: 32.2 kg

DRUGS (2)
  1. DUPIXENT [Suspect]
     Active Substance: DUPILUMAB
     Indication: Dermatitis atopic
     Dosage: 300 MG, Q4W
     Route: 058
  2. NORDITROPIN [Concomitant]
     Active Substance: SOMATROPIN
     Dosage: UNK

REACTIONS (2)
  - Dry skin [Unknown]
  - Incorrect dose administered [Unknown]
